FAERS Safety Report 6440188-4 (Version None)
Quarter: 2009Q4

REPORT INFORMATION
  Report Type: 
  Country: None (occurrence: None)
  Receive Date: 20091113
  Receipt Date: 20090728
  Transmission Date: 20100525
  Serious: No
  Sender: FDA-Public Use
  Company Number: A0799109A

PATIENT

DRUGS (2)
  1. COREG [Suspect]
     Route: 065
  2. OTHER MEDICATIONS [Concomitant]

REACTIONS (3)
  - PRURITUS [None]
  - RASH [None]
  - URTICARIA [None]
